FAERS Safety Report 6707827-1 (Version None)
Quarter: 2010Q2

REPORT INFORMATION
  Report Type: 
  Country: None (occurrence: None)
  Receive Date: 20100503
  Receipt Date: 20090625
  Transmission Date: 20101027
  Serious: No
  Sender: FDA-Public Use
  Company Number: US-ASTRAZENECA-2009UW17275

PATIENT
  Sex: Female

DRUGS (2)
  1. NEXIUM [Suspect]
     Indication: GASTROOESOPHAGEAL REFLUX DISEASE
     Route: 048
     Dates: start: 20090501, end: 20090615
  2. ALDARA [Suspect]
     Indication: BASAL CELL CARCINOMA

REACTIONS (3)
  - CHILLS [None]
  - NAUSEA [None]
  - RASH PRURITIC [None]
